FAERS Safety Report 5589267-4 (Version None)
Quarter: 2008Q1

REPORT INFORMATION
  Report Type: 
  Country: None (occurrence: None)
  Receive Date: 20080114
  Receipt Date: 20080108
  Transmission Date: 20080703
  Serious: Yes (Death, Other)
  Sender: FDA-Public Use
  Company Number: PHBS2008US00624

PATIENT
  Age: 6 Year
  Sex: Male

DRUGS (4)
  1. CYCLOPHOSPHAMIDE [Concomitant]
  2. IRRADIATION [Concomitant]
  3. METHOTREXATE [Concomitant]
  4. CYCLOSPORINE [Suspect]
     Indication: STEM CELL TRANSPLANT
     Dosage: UNK, UNK
     Route: 065

REACTIONS (22)
  - ADENOVIRUS INFECTION [None]
  - APHASIA [None]
  - ASTHENIA [None]
  - COMA [None]
  - COORDINATION ABNORMAL [None]
  - CSF MYELIN BASIC PROTEIN INCREASED [None]
  - CSF PROTEIN INCREASED [None]
  - DRAIN OF CEREBRAL SUBDURAL SPACE [None]
  - DYSARTHRIA [None]
  - ELECTROENCEPHALOGRAM ABNORMAL [None]
  - ENCEPHALOPATHY [None]
  - ENDOTRACHEAL INTUBATION [None]
  - GLIOSIS [None]
  - GRAFT VERSUS HOST DISEASE [None]
  - HEADACHE [None]
  - MYOCLONUS [None]
  - NUCLEAR MAGNETIC RESONANCE IMAGING ABNORMAL [None]
  - RESPIRATORY DISORDER [None]
  - SUBDURAL EFFUSION [None]
  - VIRAL DIARRHOEA [None]
  - VISION BLURRED [None]
  - VOMITING [None]
